FAERS Safety Report 25690564 (Version 1)
Quarter: 2025Q3

REPORT INFORMATION
  Report Type: Spontaneous
  Country: US (occurrence: US)
  Receive Date: 20250818
  Receipt Date: 20250818
  Transmission Date: 20251020
  Serious: Yes (Life-Threatening, Hospitalization)
  Sender: ASCEND THERAPEUTICS US, LLC
  Company Number: US-Ascend Therapeutics US, LLC-2182692

PATIENT
  Age: 49 Year
  Sex: Male

DRUGS (3)
  1. ANDROGEL [Suspect]
     Active Substance: TESTOSTERONE
     Indication: Medical anabolic therapy
  2. TESTOSTERONE [Suspect]
     Active Substance: TESTOSTERONE
  3. LEVOTHYROXINE [Concomitant]
     Active Substance: LEVOTHYROXINE

REACTIONS (4)
  - Cerebral venous sinus thrombosis [Unknown]
  - Drug abuse [Recovering/Resolving]
  - Polycythaemia [Unknown]
  - Subarachnoid haemorrhage [Recovering/Resolving]
